FAERS Safety Report 6104160-6 (Version None)
Quarter: 2009Q1

REPORT INFORMATION
  Report Type: 
  Country: None (occurrence: None)
  Receive Date: 20090305
  Receipt Date: 20090304
  Transmission Date: 20090719
  Serious: Yes (Hospitalization)
  Sender: FDA-Public Use
  Company Number: RU-BRISTOL-MYERS SQUIBB COMPANY-14487094

PATIENT
  Age: 43 Year
  Sex: Male

DRUGS (7)
  1. CARBOPLATIN [Suspect]
     Indication: NON-SMALL CELL LUNG CANCER
     Dosage: 1DOSAGE FORM=AUC 6MG/M2;FIRST DOSE ON 31DEC08. REDUCED TO 4.5 AUC.
     Dates: start: 20090121, end: 20090121
  2. TAXOL [Suspect]
     Indication: NON-SMALL CELL LUNG CANCER
     Dosage: FIRST DOSE ON 31DEC08. DOSE REDUCED TO 150 MG/M2.
     Dates: start: 20090121, end: 20090121
  3. ONDANSETRON [Concomitant]
     Indication: PROPHYLAXIS
     Route: 048
     Dates: start: 20090121, end: 20090123
  4. RANITIDINE [Concomitant]
     Indication: PREMEDICATION
     Route: 042
     Dates: start: 20090121, end: 20090121
  5. DEXAMETHASONE [Concomitant]
     Indication: PREMEDICATION
     Route: 042
     Dates: start: 20090121, end: 20090121
  6. KETOROLAC [Concomitant]
  7. DIMEDROLUM [Concomitant]

REACTIONS (1)
  - SUPRAVENTRICULAR TACHYCARDIA [None]
